FAERS Safety Report 7705824-0 (Version None)
Quarter: 2011Q3

REPORT INFORMATION
  Report Type: 
  Country: None (occurrence: None)
  Receive Date: 20110824
  Receipt Date: 20110815
  Transmission Date: 20111222
  Serious: Yes (Other)
  Sender: FDA-Public Use
  Company Number: CA-ELI_LILLY_AND_COMPANY-CA201108004592

PATIENT
  Sex: Male

DRUGS (6)
  1. ZYPREXA [Suspect]
     Dosage: 10 MG, UNK
  2. CELEXA [Concomitant]
  3. DIVALPROEX SODIUM [Concomitant]
  4. RISPERIDONE [Concomitant]
  5. ZYPREXA [Suspect]
     Indication: SCHIZOPHRENIA, PARANOID TYPE
     Dosage: 20 MG, UNK
  6. ZYPREXA ZYDIS [Suspect]
     Indication: SCHIZOPHRENIA, PARANOID TYPE
     Dosage: 20 MG, UNK

REACTIONS (4)
  - TYPE 2 DIABETES MELLITUS [None]
  - HYPERLIPIDAEMIA [None]
  - MYOCARDIAL INFARCTION [None]
  - HYPERTENSION [None]
